FAERS Safety Report 5018936-X (Version None)
Quarter: 2006Q2

REPORT INFORMATION
  Report Type: 
  Country: None (occurrence: None)
  Receive Date: 20060606
  Receipt Date: 20060425
  Transmission Date: 20061013
  Serious: Yes (Life-Threatening)
  Sender: FDA-Public Use
  Company Number: 2006AP01962

PATIENT
  Age: 275 Day
  Sex: Female
  Weight: 9.7 kg

DRUGS (12)
  1. XYLOCAINE [Suspect]
     Indication: LOCAL ANAESTHESIA
     Route: 061
     Dates: start: 20060422, end: 20060422
  2. GLYCERIN [Concomitant]
     Indication: DYSCHEZIA
     Route: 054
     Dates: start: 20060422, end: 20060422
  3. CEFOTAX [Concomitant]
     Indication: BRONCHITIS
     Route: 042
     Dates: start: 20060420, end: 20060424
  4. KN-3B [Concomitant]
     Indication: BRONCHITIS
     Route: 042
     Dates: start: 20060420, end: 20060424
  5. 50% GLUCOSE INJECTION [Concomitant]
     Indication: BRONCHITIS
     Route: 042
     Dates: start: 20060420, end: 20060424
  6. HOKUNALIN TAPE [Concomitant]
     Route: 065
     Dates: start: 20060420, end: 20060502
  7. PERIACTIN [Concomitant]
     Indication: BRONCHITIS
     Route: 048
     Dates: start: 20060420, end: 20060502
  8. MUCODYNE [Concomitant]
     Route: 048
     Dates: start: 20060420, end: 20060502
  9. SENEGA [Concomitant]
     Route: 048
     Dates: start: 20060420, end: 20060502
  10. ENTERONON-R [Concomitant]
     Indication: DYSPEPSIA
     Route: 048
     Dates: start: 20060420, end: 20060502
  11. VENETLIN [Concomitant]
     Route: 055
     Dates: start: 20060420, end: 20060502
  12. BISOLVON [Concomitant]
     Indication: BRONCHITIS
     Route: 055
     Dates: start: 20060420, end: 20060502

REACTIONS (3)
  - ANAPHYLACTIC SHOCK [None]
  - BRADYCARDIA [None]
  - SOMNOLENCE [None]
